FAERS Safety Report 16352558 (Version 2)
Quarter: 2019Q2

REPORT INFORMATION
  Report Type: Report from Study
  Country: IL (occurrence: IL)
  Receive Date: 20190524
  Receipt Date: 20190606
  Transmission Date: 20190711
  Serious: No
  Sender: FDA-Public Use
  Company Number: IL-AMGEN-ISRSL2019080063

PATIENT
  Age: 78 Year
  Sex: Female

DRUGS (2)
  1. VIT D [Concomitant]
     Active Substance: VITAMIN D NOS
     Dosage: 76 NMOL/L
  2. PROLIA [Suspect]
     Active Substance: DENOSUMAB
     Indication: OSTEOPOROSIS
     Dosage: UNK, Q6MO
     Route: 065
     Dates: start: 2014

REACTIONS (1)
  - Osteoporosis [Unknown]
